FAERS Safety Report 11642238 (Version 2)
Quarter: 2015Q4

REPORT INFORMATION
  Report Type: Spontaneous
  Country: US (occurrence: US)
  Receive Date: 20151019
  Receipt Date: 20151104
  Transmission Date: 20160304
  Serious: No
  Sender: FDA-Public Use
  Company Number: US-PFIZER INC-2015334605

PATIENT
  Sex: Female

DRUGS (1)
  1. ADVIL PM [Suspect]
     Active Substance: DIPHENHYDRAMINE CITRATE\IBUPROFEN
     Dosage: TWO TABLETS 12:00 PM

REACTIONS (3)
  - Somnolence [Unknown]
  - Fatigue [Unknown]
  - Wrong drug administered [Unknown]
